FAERS Safety Report 11740409 (Version 2)
Quarter: 2015Q4

REPORT INFORMATION
  Report Type: Spontaneous
  Country: US (occurrence: US)
  Receive Date: 20151110
  Receipt Date: 20151120
  Transmission Date: 20160304
  Serious: No
  Sender: FDA-Public Use
  Company Number: US-ELI_LILLY_AND_COMPANY-US201204000316

PATIENT
  Age: 63 Year
  Sex: Female

DRUGS (4)
  1. FORTEO [Suspect]
     Active Substance: TERIPARATIDE
     Dosage: 20 UG, QD
  2. FORTEO [Suspect]
     Active Substance: TERIPARATIDE
     Indication: OSTEOPOROSIS
     Dosage: 20 UG, QD
     Dates: start: 20120325
  3. FORTEO [Suspect]
     Active Substance: TERIPARATIDE
     Dosage: 20 UG, QD
  4. BENAZEPRIL [Concomitant]
     Active Substance: BENAZEPRIL HYDROCHLORIDE
     Indication: BLOOD PRESSURE MEASUREMENT

REACTIONS (16)
  - Lumbar hernia [Unknown]
  - Hypotension [Recovering/Resolving]
  - Paraesthesia [Unknown]
  - Ligament sprain [Unknown]
  - Dizziness [Recovered/Resolved]
  - Limb injury [Not Recovered/Not Resolved]
  - Onychoclasis [Not Recovered/Not Resolved]
  - Asthenia [Recovered/Resolved]
  - Foot fracture [Not Recovered/Not Resolved]
  - Pain in extremity [Unknown]
  - Onychalgia [Not Recovered/Not Resolved]
  - Nail disorder [Not Recovered/Not Resolved]
  - Hypoaesthesia [Unknown]
  - Foot deformity [Unknown]
  - Asthenia [Not Recovered/Not Resolved]
  - Fall [Unknown]

NARRATIVE: CASE EVENT DATE: 20120328
